FAERS Safety Report 10108990 (Version 1)
Quarter: 2014Q2

REPORT INFORMATION
  Report Type: Spontaneous
  Country: US (occurrence: US)
  Receive Date: 20140425
  Receipt Date: 20140425
  Transmission Date: 20141212
  Serious: Yes (Other)
  Sender: FDA-Public Use
  Company Number: US-BAYER-2014-059240

PATIENT
  Age: 42 Year
  Sex: Female

DRUGS (12)
  1. YAZ [Suspect]
  2. FLUOXETINE [Concomitant]
     Dosage: 20 MG, UNK
     Route: 048
     Dates: start: 20070322
  3. PAROXETINE [Concomitant]
     Dosage: 20 MG, UNK
     Route: 048
     Dates: start: 20070409
  4. PROMETHAZINE [Concomitant]
     Dosage: 25 MG, UNK
     Route: 048
     Dates: start: 20070415
  5. CEFUROXIME [Concomitant]
     Dosage: 250 MG, UNK
     Route: 048
     Dates: start: 20070501
  6. PHENAVENT [Concomitant]
     Dosage: UNK
     Route: 048
     Dates: start: 20070501
  7. EFFEXOR [Concomitant]
     Dosage: 75 MG, UNK
     Route: 048
     Dates: start: 20070508
  8. EFUDEX [Concomitant]
     Dosage: 5 %, UNK
     Route: 061
     Dates: start: 20070603
  9. TRIAMCINOLONE [Concomitant]
     Dosage: 0.1 %, UNK
     Route: 061
     Dates: start: 20070603
  10. ZOVIRAX [Concomitant]
     Dosage: 5 %, UNK
     Route: 061
     Dates: start: 20070603
  11. NASATAB [Concomitant]
     Dosage: UNK
     Route: 048
     Dates: start: 20070610
  12. METHOCARBAMOL [Concomitant]
     Dosage: 750 MG, UNK
     Route: 048
     Dates: start: 20070620

REACTIONS (1)
  - Deep vein thrombosis [None]
